FAERS Safety Report 10862666 (Version 1)
Quarter: 2015Q1

REPORT INFORMATION
  Report Type: Spontaneous
  Country: NL (occurrence: NL)
  Receive Date: 20150223
  Receipt Date: 20150223
  Transmission Date: 20150721
  Serious: Yes (Disabling)
  Sender: FDA-Public Use
  Company Number: NL-009507513-1502NLD007930

PATIENT
  Age: 52 Year
  Sex: Female
  Weight: 90 kg

DRUGS (1)
  1. MIRTAZAPINE ORODISPERGEERBARE TABLETTEN [Suspect]
     Active Substance: MIRTAZAPINE
     Indication: DEPRESSION
     Dosage: EVERY EVENING HALF TABLET
     Route: 048
     Dates: start: 20141017, end: 20150216

REACTIONS (1)
  - Overweight [Not Recovered/Not Resolved]

NARRATIVE: CASE EVENT DATE: 20141017
